FAERS Safety Report 25787902 (Version 1)
Quarter: 2025Q3

REPORT INFORMATION
  Report Type: Spontaneous
  Country: US (occurrence: US)
  Receive Date: 20250910
  Receipt Date: 20250910
  Transmission Date: 20251021
  Serious: Yes (Other)
  Sender: MYLAN
  Company Number: US-MYLANLABS-2025M1075913

PATIENT

DRUGS (6)
  1. FONDAPARINUX [Suspect]
     Active Substance: FONDAPARINUX
     Indication: Anticoagulant therapy
     Dosage: 7.5 MILLIGRAM, PM (NIGHTLY)
  2. FONDAPARINUX [Suspect]
     Active Substance: FONDAPARINUX
  3. BIVALIRUDIN [Suspect]
     Active Substance: BIVALIRUDIN
     Indication: Anticoagulant therapy
  4. HEPARIN [Suspect]
     Active Substance: HEPARIN SODIUM
     Indication: Anticoagulant therapy
  5. WARFARIN [Suspect]
     Active Substance: WARFARIN
     Indication: Anticoagulant therapy
  6. ARGATROBAN [Suspect]
     Active Substance: ARGATROBAN
     Indication: Anticoagulant therapy

REACTIONS (2)
  - Low birth weight baby [Unknown]
  - Foetal exposure during pregnancy [Recovered/Resolved]
